FAERS Safety Report 6282426-7 (Version None)
Quarter: 2009Q3

REPORT INFORMATION
  Report Type: 
  Country: None (occurrence: None)
  Receive Date: 20090724
  Receipt Date: 20090716
  Transmission Date: 20100115
  Serious: Yes (Death, Hospitalization)
  Sender: FDA-Public Use
  Company Number: AR-ROCHE-642380

PATIENT
  Sex: Female

DRUGS (3)
  1. MYCOPHENOLATE MOFETIL [Suspect]
     Indication: RENAL TRANSPLANT
     Dosage: DRUG NAME ALSO REPORTED AS MYCOPHENOLATE SODIUM.
     Route: 065
     Dates: start: 20051021
  2. BELATACEPT [Suspect]
     Indication: RENAL TRANSPLANT
     Dosage: DOSING REGIMEN REPORTED AS LESS INTENSIVE BELATACEPT.
     Route: 042
     Dates: start: 20051021
  3. PREDNISONE [Suspect]
     Indication: RENAL TRANSPLANT
     Route: 065
     Dates: start: 20051024

REACTIONS (2)
  - ARRHYTHMIA [None]
  - SEPSIS [None]
